FAERS Safety Report 8960953 (Version 1)
Quarter: 2012Q4

REPORT INFORMATION
  Report Type: 
  Country: US (occurrence: US)
  Receive Date: 20121212
  Receipt Date: 20121212
  Transmission Date: 20130627
  Serious: No
  Sender: FDA-Public Use
  Company Number: US-ASTRAZENECA-2001UW00558

PATIENT
  Age: 75 Year
  Sex: Female
  Weight: 75.8 kg

DRUGS (9)
  1. NEXIUM [Suspect]
     Route: 048
  2. PRILOSEC [Suspect]
     Indication: BARRETT^S OESOPHAGUS
     Route: 048
  3. THYROID MEDICATION [Concomitant]
  4. AMBIEN [Concomitant]
  5. DIAZEPAM [Concomitant]
  6. PEPCID AC [Concomitant]
  7. HYDREA [Concomitant]
     Indication: THROMBOCYTOPENIA
  8. LEVOXYL [Concomitant]
     Indication: THYROID DISORDER
  9. ASA [Concomitant]

REACTIONS (5)
  - Joint injury [Unknown]
  - Glossodynia [Unknown]
  - NUMBNESS AND TINGLING OF THE HANDS [Unknown]
  - Dysgeusia [Unknown]
  - Thrombocytopenia [Unknown]
